FAERS Safety Report 6657468-X (Version None)
Quarter: 2010Q1

REPORT INFORMATION
  Report Type: 
  Country: None (occurrence: None)
  Receive Date: 20100330
  Receipt Date: 20100318
  Transmission Date: 20100710
  Serious: Yes (Hospitalization, Other)
  Sender: FDA-Public Use
  Company Number: PHHY2010BR16459

PATIENT
  Age: 53 Year
  Sex: Male
  Weight: 74 kg

DRUGS (12)
  1. TEGRETOL [Suspect]
     Indication: CONVULSION
     Dosage: 400 MG, BID
     Route: 048
     Dates: start: 20100315
  2. TEGRETOL-XR [Suspect]
     Indication: CONVULSION
     Dosage: 400 MG, BID
  3. SELOZOK [Concomitant]
     Indication: CONVULSION
     Dosage: 50 MG, BID
  4. MONOCORDIL [Concomitant]
     Indication: CONVULSION
     Dosage: 20 MG, BID
  5. AMLODIPINE BESYLATE [Concomitant]
     Indication: HYPERTENSION
     Dosage: 10 MG, BID
  6. CAPTOPRIL [Concomitant]
     Indication: HYPERTENSION
     Dosage: 50 MG, TID
  7. SLOW-K [Concomitant]
     Indication: HYPOKALAEMIA
     Dosage: 600 MG DAILY
  8. ALDACTONE [Concomitant]
     Dosage: 50 MG DAILY
  9. LIPITOR [Concomitant]
     Dosage: 10 MG DAILY
  10. PONDERAL [Concomitant]
     Indication: DEPRESSION
     Dosage: 20 MG DAILY
  11. OMEPRAZOLE [Concomitant]
     Dosage: 1 OR 2 TABLETS DAILY
  12. GLUCOSAMINE SULFATE W/CHONDROITIN [Concomitant]
     Indication: OSTEOARTHRITIS
     Dosage: 1 TABLET (500/400 MG) DAILY

REACTIONS (4)
  - CRYING [None]
  - DRUG PRESCRIBING ERROR [None]
  - HYPOTENSION [None]
  - INAPPROPRIATE AFFECT [None]
